FAERS Safety Report 11720000 (Version 1)
Quarter: 2015Q4

REPORT INFORMATION
  Report Type: Report from Study
  Country: FR (occurrence: FR)
  Receive Date: 20151110
  Receipt Date: 20151110
  Transmission Date: 20160304
  Serious: Yes (Other)
  Sender: FDA-Public Use
  Company Number: FR-ROCHE-1656770

PATIENT
  Age: 68 Year
  Sex: Male

DRUGS (1)
  1. MABTHERA [Suspect]
     Active Substance: RITUXIMAB
     Indication: WALDENSTROM^S MACROGLOBULINAEMIA
     Dosage: DOSE 1200-1400 MG
     Route: 058

REACTIONS (4)
  - Feeling hot [Unknown]
  - Oedema [Unknown]
  - Erythema [Unknown]
  - Skin necrosis [Not Recovered/Not Resolved]
